FAERS Safety Report 18838605 (Version 1)
Quarter: 2021Q1

REPORT INFORMATION
  Report Type: Spontaneous
  Country: US (occurrence: US)
  Receive Date: 20210203
  Receipt Date: 20210203
  Transmission Date: 20210419
  Serious: No
  Sender: FDA-Public Use
  Company Number: US-ALLERGAN-2038995US

PATIENT
  Sex: Female

DRUGS (1)
  1. BOTOX COSMETIC [Suspect]
     Active Substance: ONABOTULINUMTOXINA
     Indication: LIP COSMETIC PROCEDURE
     Dosage: UNK, SINGLE

REACTIONS (5)
  - Hypersensitivity [Unknown]
  - Lip erythema [Recovered/Resolved]
  - Injection site pain [Unknown]
  - Off label use [Unknown]
  - Lip swelling [Recovered/Resolved]
